FAERS Safety Report 14954230 (Version 3)
Quarter: 2019Q1

REPORT INFORMATION
  Report Type: Report from Study
  Country: CA (occurrence: CA)
  Receive Date: 20180530
  Receipt Date: 20190110
  Transmission Date: 20190417
  Serious: Yes (Hospitalization)
  Sender: FDA-Public Use
  Company Number: CA-EISAI MEDICAL RESEARCH-EC-2018-039628

PATIENT
  Age: 61 Year
  Sex: Female

DRUGS (19)
  1. SYNTHROID [Concomitant]
     Active Substance: LEVOTHYROXINE SODIUM
  2. NAPROXEN. [Concomitant]
     Active Substance: NAPROXEN
  3. AMLODIPINE [Concomitant]
     Active Substance: AMLODIPINE BESYLATE
  4. LENVIMA [Suspect]
     Active Substance: LENVATINIB
     Indication: THYROID CANCER
     Route: 048
  5. APO-HYDRO [Suspect]
     Active Substance: HYDROCHLOROTHIAZIDE
     Dosage: UNKNOWN
     Route: 048
     Dates: start: 201809
  6. IRBESARTAN. [Concomitant]
     Active Substance: IRBESARTAN
  7. ATIVAN [Concomitant]
     Active Substance: LORAZEPAM
  8. HYDRALAZINE [Concomitant]
     Active Substance: HYDRALAZINE HYDROCHLORIDE
  9. LENVIMA [Suspect]
     Active Substance: LENVATINIB
     Route: 048
     Dates: start: 201807
  10. LANTUS [Concomitant]
     Active Substance: INSULIN GLARGINE
  11. APO-HYDRO [Suspect]
     Active Substance: HYDROCHLOROTHIAZIDE
     Indication: HYPERTENSION
     Dosage: UNKNOWN
     Route: 048
     Dates: start: 201805, end: 201805
  12. ATORVASTATIN [Concomitant]
     Active Substance: ATORVASTATIN
  13. IPSILAN [Concomitant]
  14. LENVIMA [Suspect]
     Active Substance: LENVATINIB
     Route: 048
     Dates: start: 20180618, end: 20180623
  15. NOVO-RAPID INSULIN [Concomitant]
  16. CALCIUM [Concomitant]
     Active Substance: CALCIUM
  17. LENVIMA [Suspect]
     Active Substance: LENVATINIB
     Route: 048
     Dates: start: 20180518, end: 20180520
  18. LENVIMA [Suspect]
     Active Substance: LENVATINIB
     Route: 048
     Dates: start: 20180629, end: 201806
  19. ROCALTROL [Concomitant]
     Active Substance: CALCITRIOL

REACTIONS (26)
  - Aphonia [Unknown]
  - Infrequent bowel movements [Unknown]
  - Ear pain [Recovered/Resolved]
  - Diarrhoea [Recovered/Resolved]
  - Myalgia [Unknown]
  - Blood magnesium decreased [Unknown]
  - Abdominal pain [Not Recovered/Not Resolved]
  - Swelling of eyelid [Unknown]
  - Blood pressure increased [Unknown]
  - Epistaxis [Unknown]
  - Peripheral swelling [Recovering/Resolving]
  - Arthralgia [Unknown]
  - Osteoarthritis [Unknown]
  - Malaise [Recovering/Resolving]
  - Weight decreased [Unknown]
  - Cardiac failure [Unknown]
  - Decreased appetite [Unknown]
  - Cough [Unknown]
  - Fatigue [Unknown]
  - Abdominal pain upper [Unknown]
  - Abdominal discomfort [Unknown]
  - Myalgia [Unknown]
  - Oropharyngeal pain [Not Recovered/Not Resolved]
  - Nausea [Unknown]
  - Abnormal faeces [Unknown]
  - Headache [Unknown]

NARRATIVE: CASE EVENT DATE: 2018
